FAERS Safety Report 6857356-X (Version None)
Quarter: 2010Q3

REPORT INFORMATION
  Report Type: 
  Country: None (occurrence: None)
  Receive Date: 20100719
  Receipt Date: 20100709
  Transmission Date: 20110219
  Serious: Yes (Other)
  Sender: FDA-Public Use
  Company Number: US-SANOFI-AVENTIS-2010SA041033

PATIENT
  Sex: Male

DRUGS (1)
  1. UROXATRAL [Suspect]
     Route: 048

REACTIONS (1)
  - INFECTION [None]
